FAERS Safety Report 5949047-4 (Version None)
Quarter: 2008Q4

REPORT INFORMATION
  Report Type: 
  Country: None (occurrence: None)
  Receive Date: 20081111
  Receipt Date: 20081104
  Transmission Date: 20090506
  Serious: Yes (Other)
  Sender: FDA-Public Use
  Company Number: AU-PFIZER INC-2008088034

PATIENT
  Sex: Female

DRUGS (2)
  1. CHAMPIX [Suspect]
     Dosage: TEXT:0.5MG AND 1MG
  2. ZOLOFT [Concomitant]

REACTIONS (1)
  - CHOLECYSTITIS ACUTE [None]
